FAERS Safety Report 12119592 (Version 1)
Quarter: 2016Q1

REPORT INFORMATION
  Report Type: Spontaneous
  Country: US (occurrence: None)
  Receive Date: 20160225
  Receipt Date: 20160225
  Transmission Date: 20160526
  Serious: Yes (Other)
  Sender: FDA-Public Use
  Company Number: None

PATIENT
  Age: 51 Year
  Sex: Female

DRUGS (17)
  1. ESCITALOPRAM [Concomitant]
     Active Substance: ESCITALOPRAM OXALATE
  2. TOPIRAMATE. [Concomitant]
     Active Substance: TOPIRAMATE
  3. CYANOCOBALAMIN. [Concomitant]
     Active Substance: CYANOCOBALAMIN
  4. CLONAZEPAM. [Concomitant]
     Active Substance: CLONAZEPAM
  5. SIMVASTATIN. [Concomitant]
     Active Substance: SIMVASTATIN
  6. AMPYRA [Suspect]
     Active Substance: DALFAMPRIDINE
     Indication: MULTIPLE SCLEROSIS
     Route: 048
     Dates: start: 201509
  7. TROSPIUM [Concomitant]
     Active Substance: TROSPIUM
  8. BACLOFEN. [Concomitant]
     Active Substance: BACLOFEN
  9. METFORMIN [Concomitant]
     Active Substance: METFORMIN HYDROCHLORIDE
  10. FEXOFENADINE/PSEUDOEPHEDRINE [Concomitant]
     Active Substance: FEXOFENADINE\PSEUDOEPHEDRINE
  11. OXYCODONE/APAP [Concomitant]
     Active Substance: ACETAMINOPHEN\OXYCODONE HYDROCHLORIDE
  12. FLUTICASONE [Concomitant]
     Active Substance: FLUTICASONE\FLUTICASONE PROPIONATE
  13. OMEPRAZOLE. [Concomitant]
     Active Substance: OMEPRAZOLE
  14. ALBUTEROL. [Concomitant]
     Active Substance: ALBUTEROL
  15. ASA [Concomitant]
     Active Substance: ASPIRIN
  16. LIDOCAINE. [Concomitant]
     Active Substance: LIDOCAINE
  17. DICYCLOMINE [Concomitant]
     Active Substance: DICYCLOMINE HYDROCHLORIDE

REACTIONS (6)
  - Haematuria [None]
  - Dysuria [None]
  - Bladder spasm [None]
  - Chlamydial infection [None]
  - Rash [None]
  - Pharyngitis streptococcal [None]

NARRATIVE: CASE EVENT DATE: 20160120
